FAERS Safety Report 5303572-8 (Version None)
Quarter: 2007Q2

REPORT INFORMATION
  Report Type: 
  Country: None (occurrence: None)
  Receive Date: 20070420
  Receipt Date: 20070410
  Transmission Date: 20071010
  Serious: Yes (Other)
  Sender: FDA-Public Use
  Company Number: US-PFIZER INC-2007029196

PATIENT
  Sex: Female
  Weight: 77.1 kg

DRUGS (5)
  1. CHANTIX [Suspect]
     Indication: SMOKING CESSATION THERAPY
     Dates: start: 20070401, end: 20070408
  2. CELEXA [Concomitant]
  3. DIAZEPAM [Concomitant]
  4. NEXIUM [Concomitant]
  5. PREMARIN [Concomitant]

REACTIONS (5)
  - ANXIETY [None]
  - BLOOD PRESSURE INCREASED [None]
  - DYSKINESIA [None]
  - PANIC ATTACK [None]
  - SOMNOLENCE [None]
